FAERS Safety Report 9516062 (Version 3)
Quarter: 2013Q4

REPORT INFORMATION
  Report Type: Spontaneous
  Country: JP (occurrence: None)
  Receive Date: 20130909
  Receipt Date: 20131016
  Transmission Date: 20140711
  Serious: Yes (Other)
  Sender: FDA-Public Use
  Company Number: JP-012878

PATIENT
  Age: 81 Year
  Sex: Male

DRUGS (3)
  1. DEGARELIX [Suspect]
     Indication: PROSTATE CANCER
     Route: 058
     Dates: start: 20130507, end: 20130507
  2. BICALUTAMIDE [Concomitant]
  3. HUMALOG [Concomitant]

REACTIONS (2)
  - Diabetes mellitus [None]
  - Injection site induration [None]
